FAERS Safety Report 14995548 (Version 2)
Quarter: 2018Q3

REPORT INFORMATION
  Report Type: Spontaneous
  Country: DE (occurrence: DE)
  Receive Date: 20180611
  Receipt Date: 20180702
  Transmission Date: 20181010
  Serious: Yes (Other)
  Sender: FDA-Public Use
  Company Number: DE-CELGENEUS-DEU-20180601154

PATIENT
  Age: 71 Year
  Sex: Male
  Weight: 75 kg

DRUGS (10)
  1. COTRIM [Suspect]
     Active Substance: SULFAMETHOXAZOLE\TRIMETHOPRIM
     Indication: URINARY TRACT INFECTION
     Route: 065
  2. TORASEMIDE COMPLEX [Concomitant]
     Indication: CARDIAC FAILURE
     Route: 065
  3. OTEZLA [Suspect]
     Active Substance: APREMILAST
     Indication: PSORIASIS
     Dosage: 30 MILLIGRAM
     Route: 048
     Dates: start: 201805, end: 20180531
  4. NEBIVOLOL. [Concomitant]
     Active Substance: NEBIVOLOL
     Indication: BLOOD PRESSURE MEASUREMENT
     Dosage: 5 MILLIGRAM 1/2?0?1/2
     Route: 065
  5. PREDNISOLONE. [Concomitant]
     Active Substance: PREDNISOLONE
     Indication: HYPERLIPIDAEMIA
     Route: 065
  6. GENTAMYCIN [Suspect]
     Active Substance: GENTAMICIN
     Indication: URINARY TRACT INFECTION
     Route: 041
  7. ATORVASTATIN [Concomitant]
     Active Substance: ATORVASTATIN
     Indication: HYPERLIPIDAEMIA
     Route: 065
  8. ASPIRIN. [Concomitant]
     Active Substance: ASPIRIN
     Indication: CORONARY ARTERY DISEASE
     Route: 065
  9. OTEZLA [Suspect]
     Active Substance: APREMILAST
     Indication: PSORIATIC ARTHROPATHY
  10. RAMIPRIL. [Concomitant]
     Active Substance: RAMIPRIL
     Indication: BLOOD PRESSURE MEASUREMENT
     Route: 065

REACTIONS (1)
  - Renal failure [Recovered/Resolved]

NARRATIVE: CASE EVENT DATE: 20180528
